FAERS Safety Report 14835188 (Version 1)
Quarter: 2018Q2

REPORT INFORMATION
  Report Type: Spontaneous
  Country: ZA (occurrence: ZA)
  Receive Date: 20180502
  Receipt Date: 20180502
  Transmission Date: 20180711
  Serious: Yes (Other)
  Sender: FDA-Public Use
  Company Number: ZA-AMGEN-ZAFSP2018058453

PATIENT
  Age: 59 Year
  Sex: Female
  Weight: 63.8 kg

DRUGS (1)
  1. ENBREL [Suspect]
     Active Substance: ETANERCEPT
     Indication: PRODUCT USED FOR UNKNOWN INDICATION
     Dosage: 50 MG, WEEKLY
     Route: 058

REACTIONS (4)
  - Musculoskeletal stiffness [Unknown]
  - Infective tenosynovitis [Unknown]
  - C-reactive protein increased [Unknown]
  - Arthralgia [Unknown]
